FAERS Safety Report 9018073 (Version 3)
Quarter: 2013Q3

REPORT INFORMATION
  Report Type: Report from Study
  Country: US (occurrence: US)
  Receive Date: 20130117
  Receipt Date: 20130821
  Transmission Date: 20140515
  Serious: Yes (Hospitalization)
  Sender: FDA-Public Use
  Company Number: PHHO2013US000866

PATIENT
  Age: 67 Year
  Sex: Male
  Weight: 146.3 kg

DRUGS (6)
  1. FUROSEMIDE [Suspect]
     Indication: OEDEMA PERIPHERAL
     Dosage: 20 MG, QD
     Route: 048
     Dates: start: 20110808, end: 20130106
  2. LISINOPRIL [Suspect]
     Indication: HYPERTENSION
     Dosage: 10 MG, QD
     Route: 048
     Dates: start: 200905, end: 20130106
  3. BLINDED AIN457 [Suspect]
     Indication: RHEUMATOID ARTHRITIS
     Dosage: CODE NOT BROKEN
     Route: 058
     Dates: start: 20120123
  4. BLINDED NO TREATMENT RECEIVED [Suspect]
     Indication: RHEUMATOID ARTHRITIS
     Dosage: CODE NOT BROKEN
     Route: 058
     Dates: start: 20120123
  5. BLINDED PLACEBO [Suspect]
     Indication: RHEUMATOID ARTHRITIS
     Dosage: CODE NOT BROKEN
     Route: 058
     Dates: start: 20120123
  6. MOBIC [Suspect]
     Indication: RHEUMATOID ARTHRITIS
     Dosage: 15 MG, QD
     Route: 048
     Dates: start: 201001, end: 20130106

REACTIONS (3)
  - Metabolic acidosis [Recovered/Resolved]
  - Hyperkalaemia [Recovered/Resolved]
  - Renal failure acute [Recovered/Resolved]
